FAERS Safety Report 8846221 (Version 2)
Quarter: 2012Q4

REPORT INFORMATION
  Report Type: 
  Country: DE (occurrence: DE)
  Receive Date: 20121017
  Receipt Date: 20121228
  Transmission Date: 20130627
  Serious: Yes (Hospitalization, Other)
  Sender: FDA-Public Use
  Company Number: DE-JNJFOC-20121006371

PATIENT
  Age: 41 Year
  Sex: Male
  Weight: 83 kg

DRUGS (9)
  1. XEPLION [Suspect]
     Indication: PSYCHOTIC DISORDER
     Route: 030
     Dates: start: 20120907, end: 20120907
  2. INVEGA [Suspect]
     Indication: PSYCHOTIC DISORDER
     Dosage: 3 mg- 6mg
     Route: 048
     Dates: start: 20120831, end: 20120912
  3. CLOZAPIN [Concomitant]
     Indication: PSYCHOTIC DISORDER
     Dosage: 250 mg- 425 mg
     Route: 048
  4. CLOZAPIN [Concomitant]
     Indication: PSYCHOTIC DISORDER
     Route: 048
  5. ABILIFY [Concomitant]
     Indication: HYPOCHONDRIASIS
     Route: 048
     Dates: start: 20120925
  6. ABILIFY [Concomitant]
     Indication: HYPOCHONDRIASIS
     Dosage: 250 mg- 425 mg
     Route: 048
     Dates: end: 20120907
  7. ABILIFY [Concomitant]
     Indication: APATHY
     Dosage: 250 mg- 425 mg
     Route: 048
     Dates: end: 20120907
  8. ABILIFY [Concomitant]
     Indication: APATHY
     Route: 048
     Dates: start: 20120925
  9. IMESON [Concomitant]
     Indication: SLEEP DISORDER
     Dosage: 5mg-10 mg
     Route: 065
     Dates: start: 20120831, end: 20120912

REACTIONS (4)
  - Blood creatine phosphokinase increased [Recovered/Resolved]
  - Aspartate aminotransferase increased [Unknown]
  - Fear [Recovered/Resolved]
  - Chills [Recovered/Resolved]
